FAERS Safety Report 8908600 (Version 1)
Quarter: 2012Q4

REPORT INFORMATION
  Report Type: 
  Country: IR (occurrence: IR)
  Receive Date: 20121114
  Receipt Date: 20121114
  Transmission Date: 20130627
  Serious: Yes (Other)
  Sender: FDA-Public Use
  Company Number: PHHY2012IR104854

PATIENT
  Age: 32 Year
  Sex: Male

DRUGS (1)
  1. ZOLEDRONIC ACID [Suspect]
     Dosage: 5 mg, UNK
     Route: 042

REACTIONS (3)
  - Nephrotic syndrome [Unknown]
  - Proteinuria [Unknown]
  - Oedema peripheral [Unknown]
